FAERS Safety Report 6237731-7 (Version None)
Quarter: 2009Q2

REPORT INFORMATION
  Report Type: 
  Country: None (occurrence: None)
  Receive Date: 20090618
  Receipt Date: 20090605
  Transmission Date: 20091009
  Serious: Yes (Death)
  Sender: FDA-Public Use
  Company Number: OSCN-PR-0905S-0272

PATIENT
  Age: 55 Year
  Sex: Female
  Weight: 118.8424 kg

DRUGS (12)
  1. OMNISCAN [Suspect]
     Indication: CEREBROVASCULAR ACCIDENT
     Dosage: 30 ML, SINGLE DOSE, I.V., 30 ML, SINGLE DOSE, I.V.
     Route: 042
     Dates: start: 20060626, end: 20060626
  2. OMNISCAN [Suspect]
     Indication: CEREBROVASCULAR ACCIDENT
     Dosage: 30 ML, SINGLE DOSE, I.V., 30 ML, SINGLE DOSE, I.V.
     Route: 042
     Dates: start: 20060627, end: 20060627
  3. INSULIN (SLIDING SCALE) [Concomitant]
  4. LASIX [Concomitant]
  5. LISINOPRIL [Concomitant]
  6. METOPROLOL (TOPROL XL) [Concomitant]
  7. CLONIDINE [Concomitant]
  8. NICARDIPINE HYDROCHLORIDE [Concomitant]
  9. LIPITOR [Concomitant]
  10. VYTORIN [Concomitant]
  11. HEPARIN (LOW-DOSE PROTOCOL) [Concomitant]
  12. LEVAQUIN [Concomitant]

REACTIONS (4)
  - DISEASE COMPLICATION [None]
  - DISEASE PROGRESSION [None]
  - NEPHROGENIC SYSTEMIC FIBROSIS [None]
  - RENAL FAILURE [None]
